FAERS Safety Report 7949741-X (Version None)
Quarter: 2011Q4

REPORT INFORMATION
  Report Type: 
  Country: None (occurrence: None)
  Receive Date: 20111130
  Receipt Date: 20111126
  Transmission Date: 20120403
  Serious: Yes (Other)
  Sender: FDA-Public Use
  Company Number: PHHY2011BR30050

PATIENT
  Age: 53 Year
  Sex: Female

DRUGS (3)
  1. FORMOTEROL FUMARATE [Suspect]
     Indication: ASTHMA
     Dosage: UNK
     Dates: start: 20110401
  2. ANTIBIOTICS [Concomitant]
  3. LEVOZIN [Concomitant]

REACTIONS (9)
  - SENSORY LOSS [None]
  - GAIT DISTURBANCE [None]
  - DRY MOUTH [None]
  - DEVICE MALFUNCTION [None]
  - SEDATION [None]
  - ORAL DISCOMFORT [None]
  - POLLAKIURIA [None]
  - PAIN [None]
  - TACHYCARDIA [None]
